FAERS Safety Report 9055437 (Version 1)
Quarter: 2013Q1

REPORT INFORMATION
  Report Type: Spontaneous
  Country: US (occurrence: US)
  Receive Date: 20130206
  Receipt Date: 20130206
  Transmission Date: 20140127
  Serious: Yes (Hospitalization, Other)
  Sender: FDA-Public Use
  Company Number: US-OTSUKA-US-2013-10113

PATIENT
  Sex: Male

DRUGS (3)
  1. SAMSCA [Suspect]
     Indication: BLOOD SODIUM DECREASED
     Dosage: UNK, QD
     Dates: start: 201103
  2. DIURETIC [Concomitant]
  3. MULTIVITAMINS [Concomitant]

REACTIONS (2)
  - Abdominal distension [Recovered/Resolved]
  - Confusional state [Recovered/Resolved]
